FAERS Safety Report 7470010-9 (Version None)
Quarter: 2011Q2

REPORT INFORMATION
  Report Type: 
  Country: None (occurrence: None)
  Receive Date: 20110510
  Receipt Date: 20110506
  Transmission Date: 20111010
  Serious: Yes (Hospitalization)
  Sender: FDA-Public Use
  Company Number: IT-ROCHE-775590

PATIENT
  Sex: Male

DRUGS (2)
  1. REBETOL [Concomitant]
  2. PEGASYS [Suspect]
     Route: 058
     Dates: start: 20101116, end: 20101221

REACTIONS (1)
  - AXONAL NEUROPATHY [None]
